FAERS Safety Report 10508819 (Version 2)
Quarter: 2014Q4

REPORT INFORMATION
  Report Type: Spontaneous
  Country: JP (occurrence: JP)
  Receive Date: 20141009
  Receipt Date: 20141029
  Transmission Date: 20150528
  Serious: Yes (Other)
  Sender: FDA-Public Use
  Company Number: JP-PFIZER INC-2014275172

PATIENT
  Age: 71 Year
  Sex: Female

DRUGS (4)
  1. LYRICA [Suspect]
     Active Substance: PREGABALIN
     Indication: SPINAL COLUMN STENOSIS
     Dosage: 50 MG (25 MG X 2 CAPSULES)/DAY
     Route: 048
     Dates: start: 201401, end: 201404
  2. LYRICA [Suspect]
     Active Substance: PREGABALIN
     Dosage: 75 MG (25 MG X 1CAPSULE IN THE MORNING, 25 MG X 2 CAPSULES BEFORE BEDTIME)/DAY
     Route: 048
     Dates: start: 201404, end: 201408
  3. LYRICA [Suspect]
     Active Substance: PREGABALIN
     Dosage: 25 MG, DAILY
     Route: 048
     Dates: start: 201408, end: 201409
  4. LYRICA [Suspect]
     Active Substance: PREGABALIN
     Dosage: 50 MG (25 MG X2 CAPSULES)/DAY
     Route: 048
     Dates: start: 201408, end: 201408

REACTIONS (3)
  - Abdominal pain upper [Unknown]
  - Gastric cancer [Unknown]
  - Oedema peripheral [Unknown]

NARRATIVE: CASE EVENT DATE: 201408
